FAERS Safety Report 4479339-X (Version None)
Quarter: 2004Q4

REPORT INFORMATION
  Report Type: 
  Country: None (occurrence: None)
  Receive Date: 20041020
  Receipt Date: 20041008
  Transmission Date: 20050328
  Serious: Yes (Hospitalization)
  Sender: FDA-Public Use
  Company Number: FR-JNJFOC-20040900514

PATIENT
  Age: 85 Year
  Sex: Male

DRUGS (4)
  1. RISPERDAL [Suspect]
     Indication: DRUG USE FOR UNKNOWN INDICATION
     Route: 049
     Dates: start: 20021215
  2. CALCIUM CARBONATE [Suspect]
     Indication: DRUG USE FOR UNKNOWN INDICATION
     Route: 049
  3. DEROXAT [Suspect]
     Indication: DRUG USE FOR UNKNOWN INDICATION
  4. TRANSIPEG [Suspect]
     Indication: DRUG USE FOR UNKNOWN INDICATION
     Dosage: 2 SACHETS PER DAY
     Route: 049

REACTIONS (5)
  - DERMATITIS BULLOUS [None]
  - PEMPHIGOID [None]
  - PRURITUS [None]
  - SKIN ULCER [None]
  - TOXIC SKIN ERUPTION [None]
